FAERS Safety Report 25569565 (Version 3)
Quarter: 2025Q3

REPORT INFORMATION
  Report Type: Spontaneous
  Country: JP (occurrence: JP)
  Receive Date: 20250716
  Receipt Date: 20250822
  Transmission Date: 20251020
  Serious: Yes (Death, Other)
  Sender: SANOFI AVENTIS
  Company Number: JP-SAKK-02587001

PATIENT
  Age: 7 Decade
  Sex: Male

DRUGS (1)
  1. MABCAMPATH [Suspect]
     Active Substance: ALEMTUZUMAB
     Indication: T-cell prolymphocytic leukaemia
     Route: 041
     Dates: start: 202112, end: 2022

REACTIONS (7)
  - Disease progression [Fatal]
  - Pleural effusion [Fatal]
  - Diffuse large B-cell lymphoma [Unknown]
  - Pancytopenia [Unknown]
  - Lymphadenopathy [Unknown]
  - SARS-CoV-2 test positive [Unknown]
  - Immune system disorder [Unknown]

NARRATIVE: CASE EVENT DATE: 20220101
